FAERS Safety Report 25054214 (Version 1)
Quarter: 2025Q1

REPORT INFORMATION
  Report Type: Spontaneous
  Country: US (occurrence: US)
  Receive Date: 20250307
  Receipt Date: 20250307
  Transmission Date: 20250408
  Serious: No
  Sender: SANOFI AVENTIS
  Company Number: US-SANOFI-02436562

PATIENT
  Sex: Female
  Weight: 72.73 kg

DRUGS (8)
  1. DUPIXENT [Suspect]
     Active Substance: DUPILUMAB
     Indication: Asthma
     Dosage: 300 MG, QOW
     Route: 058
  2. DEMANNOSE [Concomitant]
     Active Substance: DEMANNOSE
  3. OXYBUTYNIN CHLORIDE [Concomitant]
     Active Substance: OXYBUTYNIN CHLORIDE
  4. LEVOTHYROXINE SODIUM [Concomitant]
     Active Substance: LEVOTHYROXINE SODIUM
  5. JARDIANCE [Concomitant]
     Active Substance: EMPAGLIFLOZIN
  6. COZAAR [Concomitant]
     Active Substance: LOSARTAN POTASSIUM
  7. NORVASC [Concomitant]
     Active Substance: AMLODIPINE BESYLATE
  8. BIOTIN [Concomitant]
     Active Substance: BIOTIN

REACTIONS (1)
  - Nasopharyngitis [Unknown]
